FAERS Safety Report 8525725-8 (Version None)
Quarter: 2012Q3

REPORT INFORMATION
  Report Type: 
  Country: None (occurrence: None)
  Receive Date: 20120720
  Receipt Date: 20120709
  Transmission Date: 20120928
  Serious: Yes (Disabling, Other)
  Sender: FDA-Public Use
  Company Number: US-009507513-1008USA00566

PATIENT

DRUGS (4)
  1. FOSAMAX [Suspect]
     Indication: OSTEOPOROSIS
     Dosage: 70 MG, QW
     Route: 048
     Dates: start: 20010606, end: 20070301
  2. BONIVA [Suspect]
     Indication: OSTEOPENIA
     Dosage: 150 MG, QM
     Route: 048
     Dates: start: 20060301, end: 20081201
  3. FOSAMAX [Suspect]
     Indication: OSTEOPENIA
  4. PREMPRO [Concomitant]
     Dates: start: 19980101, end: 20040301

REACTIONS (33)
  - FISTULA DISCHARGE [None]
  - ORAL TORUS [None]
  - SINUS TACHYCARDIA [None]
  - WHITE BLOOD CELL COUNT DECREASED [None]
  - CELLULITIS [None]
  - DIVERTICULUM INTESTINAL [None]
  - WEIGHT DECREASED [None]
  - STRESS [None]
  - GINGIVAL ERYTHEMA [None]
  - OSTEITIS [None]
  - BREAST HYPERPLASIA [None]
  - VAGINAL HAEMORRHAGE [None]
  - HYPERCEMENTOSIS [None]
  - SWELLING FACE [None]
  - OSTEOMYELITIS [None]
  - COLONIC POLYP [None]
  - DYSPLASIA [None]
  - TONGUE DISORDER [None]
  - ARTERIAL DISORDER [None]
  - BONE DISORDER [None]
  - RECTAL HAEMORRHAGE [None]
  - OSTEORADIONECROSIS [None]
  - OSTEONECROSIS OF JAW [None]
  - CARDIAC MURMUR [None]
  - SEBORRHOEIC KERATOSIS [None]
  - SCOLIOSIS [None]
  - NECK PAIN [None]
  - BASOSQUAMOUS CARCINOMA [None]
  - BREAST CALCIFICATIONS [None]
  - BASAL CELL CARCINOMA [None]
  - BREAST DISORDER [None]
  - GINGIVAL DISORDER [None]
  - NAUSEA [None]
